FAERS Safety Report 9896153 (Version 1)
Quarter: 2014Q1

REPORT INFORMATION
  Report Type: Spontaneous
  Country: US (occurrence: US)
  Receive Date: 20140213
  Receipt Date: 20140213
  Transmission Date: 20141002
  Serious: No
  Sender: FDA-Public Use
  Company Number: US-BRISTOL-MYERS SQUIBB COMPANY-17315714

PATIENT
  Age: 81 Year
  Sex: Female
  Weight: 47 kg

DRUGS (4)
  1. ORENCIA FOR INJ [Suspect]
     Route: 058
  2. METHOTREXATE [Concomitant]
  3. OXYCODONE [Concomitant]
  4. DURAGESIC PATCH [Concomitant]

REACTIONS (1)
  - Nasal congestion [Not Recovered/Not Resolved]
